FAERS Safety Report 10289009 (Version 1)
Quarter: 2014Q3

REPORT INFORMATION
  Report Type: Spontaneous
  Country: DE (occurrence: DE)
  Receive Date: 20140710
  Receipt Date: 20140710
  Transmission Date: 20150326
  Serious: Yes (Hospitalization)
  Sender: FDA-Public Use
  Company Number: DE-AMGEN INC.-DEUSP2014050678

PATIENT
  Age: 36 Year
  Sex: Female

DRUGS (2)
  1. ACETOLYT /01296001/ [Suspect]
     Active Substance: CALCIUM CITRATE\SODIUM CITRATE
     Indication: PRODUCT USED FOR UNKNOWN INDICATION
     Route: 065
  2. MIMPARA [Suspect]
     Active Substance: CINACALCET HYDROCHLORIDE
     Indication: PRODUCT USED FOR UNKNOWN INDICATION
     Dosage: 30 MG, UNK
     Route: 065
     Dates: start: 20140430

REACTIONS (6)
  - Rash [Recovering/Resolving]
  - Blood alkaline phosphatase increased [None]
  - Blood calcium decreased [None]
  - Haemoglobin decreased [None]
  - Haematocrit decreased [None]
  - Blood immunoglobulin E increased [None]
